FAERS Safety Report 10489629 (Version 1)
Quarter: 2014Q4

REPORT INFORMATION
  Report Type: Spontaneous
  Country: IN (occurrence: IN)
  Receive Date: 20141002
  Receipt Date: 20141002
  Transmission Date: 20150528
  Serious: Yes (Hospitalization)
  Sender: FDA-Public Use
  Company Number: PHHY2014IN125965

PATIENT
  Age: 4 Year
  Sex: Male

DRUGS (2)
  1. RISPERIDONE. [Suspect]
     Active Substance: RISPERIDONE
     Indication: ATTENTION DEFICIT/HYPERACTIVITY DISORDER
     Dosage: 0.5 MG, PER DAY
  2. RISPERIDONE. [Suspect]
     Active Substance: RISPERIDONE
     Indication: OFF LABEL USE
     Dosage: 10 DF, UNK

REACTIONS (9)
  - Drooling [Unknown]
  - Accidental poisoning [Unknown]
  - Coma scale abnormal [Recovered/Resolved]
  - Dysarthria [Unknown]
  - Paralysis [Unknown]
  - Somnolence [Unknown]
  - Toxicity to various agents [Unknown]
  - Muscle rigidity [Recovering/Resolving]
  - Aphasia [Unknown]
